FAERS Safety Report 4494417-7 (Version None)
Quarter: 2004Q4

REPORT INFORMATION
  Report Type: 
  Country: None (occurrence: None)
  Receive Date: 20041102
  Receipt Date: 20041018
  Transmission Date: 20050328
  Serious: Yes (Hospitalization, Other)
  Sender: FDA-Public Use
  Company Number: FR_041005057

PATIENT
  Age: 65 Year
  Sex: Female

DRUGS (2)
  1. GEMZAR [Suspect]
     Indication: PANCREATIC CARCINOMA
     Dosage: 1000 MG/M2/1 EVERY OTHER WEEK
     Dates: start: 20020701, end: 20040501
  2. OXALIPLATIN [Concomitant]

REACTIONS (8)
  - CARDIAC FAILURE [None]
  - COUGH [None]
  - DYSPNOEA [None]
  - ERYSIPELAS [None]
  - NEUROPATHY PERIPHERAL [None]
  - OEDEMA PERIPHERAL [None]
  - PYREXIA [None]
  - WEIGHT FLUCTUATION [None]
